FAERS Safety Report 6947513-6 (Version None)
Quarter: 2010Q3

REPORT INFORMATION
  Report Type: 
  Country: None (occurrence: None)
  Receive Date: 20100825
  Receipt Date: 20100811
  Transmission Date: 20110219
  Serious: Yes (Death, Hospitalization)
  Sender: FDA-Public Use
  Company Number: 016434

PATIENT
  Sex: Male

DRUGS (10)
  1. CIMZIA [Suspect]
     Indication: CROHN'S DISEASE
     Dosage: 400 MG 1X/2 WEEKS SUBCUTANEOUS
     Route: 058
     Dates: start: 20100714
  2. PENTASA [Concomitant]
  3. IMODIUM [Concomitant]
  4. IMURAN [Concomitant]
  5. PREDNISONE [Concomitant]
  6. ACETAMINOPHEN AND HYDROCODONE BITARTRATE [Concomitant]
  7. ZOFRAN [Concomitant]
  8. RISPERIDONE [Concomitant]
  9. ZOCOR [Concomitant]
  10. MULTI-VITAMIN [Concomitant]

REACTIONS (16)
  - ABDOMINAL PAIN [None]
  - ASTHENIA [None]
  - BACTERIAL TEST POSITIVE [None]
  - BLOOD GLUCOSE INCREASED [None]
  - CROHN'S DISEASE [None]
  - DEHYDRATION [None]
  - DIARRHOEA [None]
  - DIZZINESS [None]
  - HYPONATRAEMIA [None]
  - HYPOVOLAEMIA [None]
  - MICTURITION FREQUENCY DECREASED [None]
  - NAUSEA [None]
  - PALPITATIONS [None]
  - RED BLOOD CELLS URINE POSITIVE [None]
  - SLEEP DISORDER [None]
  - VOMITING [None]
